FAERS Safety Report 9297446 (Version 1)
Quarter: 2013Q2

REPORT INFORMATION
  Report Type: Spontaneous
  Country: US (occurrence: None)
  Receive Date: 20130517
  Receipt Date: 20130517
  Transmission Date: 20140414
  Serious: Yes (Hospitalization)
  Sender: FDA-Public Use
  Company Number: None

PATIENT
  Age: 44 Year
  Sex: Female
  Weight: 86.18 kg

DRUGS (9)
  1. TAXOTERE [Suspect]
     Indication: BREAST CANCER
     Route: 041
     Dates: start: 20130430, end: 20130430
  2. ONDANSETRON -ZOFRAN- [Concomitant]
  3. DEXAMETHASONE -DECADRON- [Concomitant]
  4. BENADRYL [Concomitant]
  5. LIDOCAINE 2% [Concomitant]
  6. VIS-MAALOX [Concomitant]
  7. TRAZODONE -DESYREL- [Concomitant]
  8. HYDROCODONE-ACETAMINOPHEN -NORCO- [Concomitant]
  9. HYPROMELLOSE-GLYCERIN-EYE DROP TEARS [Concomitant]

REACTIONS (8)
  - Febrile neutropenia [None]
  - Chills [None]
  - Oropharyngeal pain [None]
  - Dysphagia [None]
  - Malaise [None]
  - Nausea [None]
  - Vomiting [None]
  - Diarrhoea [None]
